FAERS Safety Report 8496468-4 (Version None)
Quarter: 2012Q3

REPORT INFORMATION
  Report Type: 
  Country: None (occurrence: None)
  Receive Date: 20120709
  Receipt Date: 20120626
  Transmission Date: 20120928
  Serious: Yes (Hospitalization, Other)
  Sender: FDA-Public Use
  Company Number: FR-NOVOPROD-354947

PATIENT
  Age: 53 Year
  Sex: Male

DRUGS (8)
  1. VALSARTAN [Concomitant]
     Dosage: 40 MG, QD
     Route: 048
  2. ALLOPURINOL [Concomitant]
     Dosage: 300 MG, QD
     Route: 048
  3. VALSARTAN  AND HYDROCHLOROTHIAZIDE [Concomitant]
     Dosage: 1 TAB, QD
     Route: 048
  4. DILTIAZEM HCL [Concomitant]
     Dosage: 300 MG, QD
     Route: 048
  5. HYPERIUM [Concomitant]
     Dosage: 3 MG, QD
     Route: 048
  6. AMARYL [Concomitant]
     Dosage: 4 MG, QD
     Route: 048
  7. VICTOZA [Suspect]
     Indication: TYPE 2 DIABETES MELLITUS
     Dosage: UNK
     Route: 058
     Dates: start: 20100101, end: 20120420
  8. GLUCOPHAGE [Concomitant]
     Dosage: 3 G, QD
     Route: 048

REACTIONS (3)
  - THROMBOCYTOPENIA [None]
  - VERTIGO [None]
  - TREMOR [None]
